FAERS Safety Report 18547640 (Version 2)
Quarter: 2021Q3

REPORT INFORMATION
  Report Type: Report from Study
  Country: None (occurrence: BR)
  Receive Date: 20201126
  Receipt Date: 20210804
  Transmission Date: 20211014
  Serious: Yes (Hospitalization)
  Sender: FDA-Public Use
  Company Number: BR-ABBVIE-20P-020-3662883-00

PATIENT
  Age: 84 Year
  Sex: Female
  Weight: 56 kg

DRUGS (7)
  1. VENLAFAXINE HYDROCHLORIDE. [Concomitant]
     Active Substance: VENLAFAXINE HYDROCHLORIDE
     Dosage: THE THERAPY WAS SUSPENDED, AND THEN RESUMED IN AUG?2020
  2. VENLAFAXINE HYDROCHLORIDE. [Concomitant]
     Active Substance: VENLAFAXINE HYDROCHLORIDE
     Indication: PRODUCT USED FOR UNKNOWN INDICATION
     Dosage: IN THE MORNING; ONGOING; VENLAFAXINE HYDROCHLORIDE 37.5 MG
     Route: 048
     Dates: start: 202008
  3. SYNTHROID [Suspect]
     Active Substance: LEVOTHYROXINE SODIUM
     Indication: THYROID HORMONE REPLACEMENT THERAPY
     Dosage: ONCE A DAY IN FASTING 75MCG; PHYSICIAN KEEPS CHANGING FROM 75MCG TO 88MCG AND VICE VERSA,
     Route: 048
     Dates: start: 2020
  4. SYNTHROID [Suspect]
     Active Substance: LEVOTHYROXINE SODIUM
     Dosage: ONCE A DAY IN FASTING; DAILY DOSE: 75MCG; PHYSICIAN KEEPS CHANGING FROM 75MCG TO 88MCG
     Route: 048
     Dates: end: 202107
  5. SYNTHROID [Suspect]
     Active Substance: LEVOTHYROXINE SODIUM
     Dosage: THERAPY START DATE: PATIENT WAS YOUNGER, OVER 50 YEARS AGO.
     Route: 048
  6. SYNTHROID [Suspect]
     Active Substance: LEVOTHYROXINE SODIUM
     Dosage: ONCE A DAY IN FASTING; DAILY DOSE: 88MCG; PHYSICIAN KEEPS CHANGING FROM 75MCG TO 88MCG
     Route: 048
     Dates: start: 202107
  7. OMEGA 3 [Concomitant]
     Active Substance: OMEGA-3 FATTY ACIDS
     Indication: NUTRITIONAL SUPPLEMENTATION

REACTIONS (4)
  - Blood thyroid stimulating hormone decreased [Unknown]
  - Endotracheal intubation [Recovered/Resolved]
  - Blood thyroid stimulating hormone increased [Unknown]
  - COVID-19 [Recovered/Resolved]

NARRATIVE: CASE EVENT DATE: 2020
